FAERS Safety Report 7864210-3 (Version None)
Quarter: 2011Q4

REPORT INFORMATION
  Report Type: 
  Country: None (occurrence: None)
  Receive Date: 20111028
  Receipt Date: 20111024
  Transmission Date: 20120403
  Serious: Yes (Hospitalization, Other)
  Sender: FDA-Public Use
  Company Number: US-PFIZER INC-2011168618

PATIENT
  Sex: Male

DRUGS (2)
  1. SUTENT [Suspect]
     Indication: RENAL CELL CARCINOMA
     Dosage: 50 MG, 1X/DAY, DAY 22 OF 42 DAYS
     Dates: start: 20110704, end: 20110814
  2. SUTENT [Suspect]
     Dosage: 37.5 MG, DAILY
     Dates: start: 20110815

REACTIONS (5)
  - CARDIAC PACEMAKER INSERTION [None]
  - BRADYCARDIA [None]
  - PLATELET COUNT DECREASED [None]
  - GASTROINTESTINAL HAEMORRHAGE [None]
  - DYSPNOEA [None]
